FAERS Safety Report 11866793 (Version 1)
Quarter: 2015Q4

REPORT INFORMATION
  Report Type: Spontaneous
  Country: US (occurrence: US)
  Receive Date: 20151224
  Receipt Date: 20151224
  Transmission Date: 20160305
  Serious: Yes (Hospitalization, Other)
  Sender: FDA-Public Use
  Company Number: US-ELI_LILLY_AND_COMPANY-US201511008865

PATIENT
  Sex: Female
  Weight: 80.3 kg

DRUGS (25)
  1. LYRICA [Concomitant]
     Active Substance: PREGABALIN
     Dosage: 200 MG, UNKNOWN
     Route: 065
     Dates: start: 2004
  2. AMITRIPTYLINE HCL [Concomitant]
     Active Substance: AMITRIPTYLINE
     Dosage: 50 MG, UNKNOWN
     Route: 065
     Dates: start: 2004
  3. FISH OIL [Concomitant]
     Active Substance: FISH OIL
     Dosage: UNK, UNKNOWN
     Route: 065
  4. NEXIUM [Concomitant]
     Active Substance: ESOMEPRAZOLE MAGNESIUM
     Dosage: UNK, UNKNOWN
     Route: 065
  5. CYMBALTA [Suspect]
     Active Substance: DULOXETINE HYDROCHLORIDE
     Indication: PRODUCT USED FOR UNKNOWN INDICATION
     Dosage: 60 MG, UNKNOWN
     Dates: start: 2004
  6. AMANTADINE HCL [Concomitant]
     Active Substance: AMANTADINE HYDROCHLORIDE
     Dosage: UNK, UNKNOWN
     Route: 065
     Dates: start: 2006
  7. VITAMIN B COMPLEX [Concomitant]
     Active Substance: CYANOCOBALAMIN\DEXPANTHENOL\NIACINAMIDE\PYRIDOXINE HYDROCHLORIDE\RIBOFLAVIN 5^-PHOSPHATE SODIUM\THIAMINE HYDROCHLORIDE\VITAMIN B COMPLEX
     Dosage: UNK, UNKNOWN
     Route: 065
  8. MELATONIN [Concomitant]
     Active Substance: MELATONIN
     Dosage: UNK, UNKNOWN
     Route: 065
  9. OXYCODONE HYDROCHLORIDE. [Concomitant]
     Active Substance: OXYCODONE HYDROCHLORIDE
     Dosage: UNK, UNKNOWN
     Route: 065
  10. ECHINACEA                          /01323501/ [Concomitant]
     Dosage: UNK, UNKNOWN
     Route: 065
  11. SIMETHICONE (DIMETHICONE) [Concomitant]
     Active Substance: DIMETHICONE
     Dosage: UNK, UNKNOWN
     Route: 065
     Dates: start: 201406
  12. NORCO [Concomitant]
     Active Substance: ACETAMINOPHEN\HYDROCODONE BITARTRATE
     Dosage: UNK, UNKNOWN
     Route: 065
  13. CRANBERRY                          /01512301/ [Concomitant]
     Active Substance: CRANBERRY
     Dosage: UNK, UNKNOWN
     Route: 065
  14. DIMETICONE [Concomitant]
     Active Substance: DIMETHICONE
     Dosage: UNK, UNKNOWN
     Route: 065
     Dates: start: 201406
  15. AMPYRA [Suspect]
     Active Substance: DALFAMPRIDINE
     Indication: MULTIPLE SCLEROSIS
     Dosage: 10 MG, BID
     Route: 048
     Dates: start: 201206, end: 201212
  16. AMPYRA [Suspect]
     Active Substance: DALFAMPRIDINE
     Indication: GAIT DISTURBANCE
     Dosage: 10 MG, BID
     Route: 048
     Dates: start: 201404
  17. TECFIDERA [Suspect]
     Active Substance: DIMETHYL FUMARATE
     Indication: PRODUCT USED FOR UNKNOWN INDICATION
     Dosage: UNK, UNKNOWN
     Route: 065
     Dates: start: 201509
  18. VICODIN [Concomitant]
     Active Substance: ACETAMINOPHEN\HYDROCODONE BITARTRATE
     Dosage: UNK, UNKNOWN
     Route: 065
  19. VITAMIN D                          /00107901/ [Concomitant]
     Active Substance: ERGOCALCIFEROL
     Dosage: UNK
     Dates: start: 201405
  20. DOPAMINE HCL [Concomitant]
     Active Substance: DOPAMINE HYDROCHLORIDE
     Dosage: UNK, UNKNOWN
     Route: 065
  21. KLONOPIN [Concomitant]
     Active Substance: CLONAZEPAM
     Dosage: UNK, UNKNOWN
     Route: 065
     Dates: start: 2005
  22. REBIF [Suspect]
     Active Substance: INTERFERON BETA-1A
     Indication: MULTIPLE SCLEROSIS
     Dosage: 22 UG, 3/W
     Route: 058
     Dates: start: 20140404, end: 20140628
  23. COPAXONE [Suspect]
     Active Substance: GLATIRAMER ACETATE
     Indication: PRODUCT USED FOR UNKNOWN INDICATION
     Dosage: UNK, UNKNOWN
     Route: 065
  24. BACLOFEN. [Concomitant]
     Active Substance: BACLOFEN
     Dosage: 20 MG, UNKNOWN
     Route: 065
     Dates: start: 2005
  25. TRIGLYCERIDES [Concomitant]
     Dosage: UNK, UNKNOWN
     Route: 065
     Dates: start: 2013

REACTIONS (31)
  - Gait disturbance [Unknown]
  - Limb injury [Unknown]
  - Balance disorder [Unknown]
  - Fall [Recovered/Resolved]
  - Gait disturbance [Recovering/Resolving]
  - Multiple sclerosis relapse [Unknown]
  - Contusion [Recovering/Resolving]
  - Muscle spasms [Unknown]
  - Asthenia [Recovering/Resolving]
  - Flushing [Recovered/Resolved]
  - Nephrolithiasis [Unknown]
  - Muscular weakness [Unknown]
  - Urticaria [Unknown]
  - Hypoaesthesia [Recovered/Resolved]
  - Crying [Unknown]
  - Paraesthesia [Unknown]
  - Confusional state [Recovering/Resolving]
  - Nasal congestion [Unknown]
  - Erythema [Recovered/Resolved]
  - Drug ineffective [Unknown]
  - Vision blurred [Unknown]
  - Peripheral swelling [Recovered/Resolved]
  - Hypoaesthesia [Unknown]
  - Weight increased [Unknown]
  - Fall [Unknown]
  - Fall [Recovering/Resolving]
  - Diarrhoea [Recovered/Resolved]
  - Pain [Unknown]
  - Cough [Recovering/Resolving]
  - Visual impairment [Unknown]
  - Anxiety [Unknown]
